FAERS Safety Report 15697820 (Version 1)
Quarter: 2018Q4

REPORT INFORMATION
  Report Type: Spontaneous
  Country: US (occurrence: US)
  Receive Date: 20181126
  Receipt Date: 20181126
  Transmission Date: 20190205
  Serious: No
  Sender: FDA-Public Use
  Company Number: None

PATIENT
  Age: 39 Year
  Sex: Female

DRUGS (11)
  1. CARVEDILOL. [Concomitant]
     Active Substance: CARVEDILOL
  2. IBUPROFEN. [Concomitant]
     Active Substance: IBUPROFEN
  3. LISINOPRIL. [Concomitant]
     Active Substance: LISINOPRIL
  4. SIMVASTATIN. [Concomitant]
     Active Substance: SIMVASTATIN
  5. CHLORTHALIDONE. [Suspect]
     Active Substance: CHLORTHALIDONE
     Indication: HYPERTENSION
     Route: 048
     Dates: start: 20110826, end: 20181006
  6. INSULIN GLARGINE [Concomitant]
     Active Substance: INSULIN GLARGINE
  7. FERROUS SULFATE. [Concomitant]
     Active Substance: FERROUS SULFATE
  8. ETHINYL ESTRADIOL + LEVONORGESTREL [Concomitant]
     Active Substance: ETHINYL ESTRADIOL\LEVONORGESTREL
  9. ZOLPIDEM [Concomitant]
     Active Substance: ZOLPIDEM\ZOLPIDEM TARTRATE
  10. INSULIN ASPART [Concomitant]
     Active Substance: INSULIN ASPART
  11. OXYCODONE [Concomitant]
     Active Substance: OXYCODONE

REACTIONS (8)
  - Nausea [None]
  - Diarrhoea [None]
  - Blood bilirubin abnormal [None]
  - Brain natriuretic peptide increased [None]
  - Vomiting [None]
  - Blood sodium decreased [None]
  - Blood potassium decreased [None]
  - Blood magnesium abnormal [None]

NARRATIVE: CASE EVENT DATE: 20181006
